FAERS Safety Report 20108490 (Version 1)
Quarter: 2021Q4

REPORT INFORMATION
  Report Type: Spontaneous
  Country: US (occurrence: US)
  Receive Date: 20211124
  Receipt Date: 20211124
  Transmission Date: 20220303
  Serious: No
  Sender: FDA-Public Use
  Company Number: US-PERRIGO-21US009854

PATIENT
  Sex: Female
  Weight: 81.633 kg

DRUGS (25)
  1. POLYETHYLENE GLYCOL 3350 [Suspect]
     Active Substance: POLYETHYLENE GLYCOL 3350
     Indication: Constipation
     Dosage: 17 G OR SLIGHTLY MORE, QD
     Route: 048
  2. METOPROLOL [Concomitant]
     Active Substance: METOPROLOL
     Indication: Hypertension
     Dosage: UNK
     Route: 065
  3. AMLODIPINE [Concomitant]
     Active Substance: AMLODIPINE BESYLATE
     Indication: Hypertension
     Dosage: UNK
     Route: 065
  4. LEVOTHYROXINE [Concomitant]
     Active Substance: LEVOTHYROXINE
     Indication: Thyroid disorder
     Dosage: UNK
     Route: 065
  5. CYMBALTA [Concomitant]
     Active Substance: DULOXETINE HYDROCHLORIDE
     Indication: Anxiety
     Dosage: UNK
     Route: 065
     Dates: start: 202104
  6. CYMBALTA [Concomitant]
     Active Substance: DULOXETINE HYDROCHLORIDE
     Indication: Depression
  7. CYMBALTA [Concomitant]
     Active Substance: DULOXETINE HYDROCHLORIDE
     Indication: Arthritis
  8. CYMBALTA [Concomitant]
     Active Substance: DULOXETINE HYDROCHLORIDE
     Indication: Fibromyalgia
  9. VALIUM [Concomitant]
     Active Substance: DIAZEPAM
     Indication: Osteoarthritis
     Dosage: 2 TO 4 MG, PRN
     Route: 065
  10. TYLENOL                            /00020001/ [Concomitant]
     Indication: Osteoarthritis
     Dosage: 650 MG, UNKNOWN
     Route: 065
  11. SIMVASTATIN [Concomitant]
     Active Substance: SIMVASTATIN
     Indication: Blood cholesterol increased
     Dosage: UNK
     Route: 065
     Dates: start: 202007
  12. FAMOTIDINE [Concomitant]
     Active Substance: FAMOTIDINE
     Indication: Gastrooesophageal reflux disease
     Dosage: UNK
     Route: 065
     Dates: start: 202007
  13. AZELASTINE [Concomitant]
     Active Substance: AZELASTINE
     Indication: Rhinitis
     Dosage: UNK
     Route: 065
  14. MELATONIN [Concomitant]
     Active Substance: MELATONIN
     Indication: Insomnia
     Dosage: 5 MG, UNKNOWN
     Route: 065
  15. XIIDRA [Concomitant]
     Active Substance: LIFITEGRAST
     Indication: Dry eye
     Dosage: UNK
     Route: 065
     Dates: start: 2019
  16. PREVIDENT [Concomitant]
     Active Substance: SODIUM FLUORIDE
     Indication: Dry mouth
     Dosage: UNK
     Route: 065
     Dates: start: 2016
  17. TURMERIC                           /01079602/ [Concomitant]
     Indication: Arthritis
     Dosage: UNK
     Route: 065
     Dates: start: 2015
  18. CALCIUM + MAGNESIUM + ZINK [Concomitant]
     Indication: Supplementation therapy
     Dosage: UNK
     Route: 065
  19. SUPER B COMPLEX                    /01995301/ [Concomitant]
     Indication: Supplementation therapy
     Dosage: UNK
     Route: 065
  20. THERATEARS [Concomitant]
     Active Substance: CARBOXYMETHYLCELLULOSE SODIUM
     Indication: Routine health maintenance
     Dosage: UNK
     Route: 065
  21. ASPIRIN [Concomitant]
     Active Substance: ASPIRIN
     Indication: Breast cancer
     Dosage: UNK
     Route: 065
  22. CELEXA                             /00582602/ [Concomitant]
     Indication: Anxiety
     Dosage: UNK
     Route: 065
     Dates: end: 202104
  23. CELEXA                             /00582602/ [Concomitant]
     Indication: Depression
  24. CELEXA                             /00582602/ [Concomitant]
     Indication: Arthritis
  25. CELEXA                             /00582602/ [Concomitant]
     Indication: Fibromyalgia

REACTIONS (3)
  - Contraindicated product administered [Not Recovered/Not Resolved]
  - Incorrect product administration duration [Not Recovered/Not Resolved]
  - Incorrect dose administered [Not Recovered/Not Resolved]
